FAERS Safety Report 9895972 (Version 1)
Quarter: 2014Q1

REPORT INFORMATION
  Report Type: Spontaneous
  Country: US (occurrence: US)
  Receive Date: 20140213
  Receipt Date: 20140213
  Transmission Date: 20141002
  Serious: No
  Sender: FDA-Public Use
  Company Number: US-BRISTOL-MYERS SQUIBB COMPANY-17408600

PATIENT
  Age: 50 Year
  Sex: Female
  Weight: 61.22 kg

DRUGS (20)
  1. ABATACEPT SUBQ INJECTION 125MG/ML [Suspect]
     Indication: RHEUMATOID ARTHRITIS
     Route: 058
     Dates: start: 20121019
  2. ADVIL [Concomitant]
  3. ARAVA [Concomitant]
  4. BORON [Concomitant]
  5. CALCIUM [Concomitant]
  6. ESTRADIOL [Concomitant]
  7. FISH OIL [Concomitant]
  8. IBUPROFEN [Concomitant]
  9. MAGNESIUM [Concomitant]
  10. MANGANESE [Concomitant]
  11. MULTIVITAMIN [Concomitant]
  12. NIACIN [Concomitant]
  13. SELENIUM [Concomitant]
  14. PROBIOTICA [Concomitant]
  15. ZANTAC [Concomitant]
  16. ZYRTEC [Concomitant]
  17. VITAMIN D [Concomitant]
  18. VITAMIN B [Concomitant]
  19. VITAMIN C [Concomitant]
  20. VITAMIN E [Concomitant]

REACTIONS (2)
  - Nasopharyngitis [Recovered/Resolved]
  - Stomatitis [Recovered/Resolved]
